FAERS Safety Report 18423986 (Version 2)
Quarter: 2020Q4

REPORT INFORMATION
  Report Type: Other
  Country: US (occurrence: US)
  Receive Date: 20201025
  Receipt Date: 20201124
  Transmission Date: 20210114
  Serious: Yes (Other)
  Sender: FDA-Public Use
  Company Number: US-ROCHE-2700337

PATIENT
  Sex: Female
  Weight: 49.94 kg

DRUGS (7)
  1. OCREVUS [Suspect]
     Active Substance: OCRELIZUMAB
     Dosage: 600 MG IN 500 ML NSS IV EVERY 6 MONTHS
     Route: 042
  2. NEOSPORINE [Concomitant]
     Active Substance: GRAMICIDIN\NEOMYCIN SULFATE\POLYMYXIN B SULFATE
     Indication: WOUND TREATMENT
     Dosage: ONGOING: YES
     Route: 061
  3. OXYBUTYNIN. [Concomitant]
     Active Substance: OXYBUTYNIN CHLORIDE
     Indication: BLADDER SPASM
     Route: 048
     Dates: start: 2015
  4. DIAZEPAM. [Concomitant]
     Active Substance: DIAZEPAM
     Indication: MOOD SWINGS
     Dosage: ONGOING YES
     Route: 048
     Dates: start: 2020
  5. OCREVUS [Suspect]
     Active Substance: OCRELIZUMAB
     Indication: MULTIPLE SCLEROSIS
     Dosage: 300 MG IN250 ML NSS IV EVERY 2 WEEKS FOR 2 TREATMENTS.
     Route: 042
  6. OCREVUS [Suspect]
     Active Substance: OCRELIZUMAB
     Indication: PRIMARY PROGRESSIVE MULTIPLE SCLEROSIS
     Route: 042
     Dates: start: 2018, end: 201912
  7. BACLOFEN. [Concomitant]
     Active Substance: BACLOFEN
     Indication: MUSCLE SPASMS
     Dosage: 2-3 TIMES PER DAY ;ONGOING: YES
     Route: 048
     Dates: start: 2005

REACTIONS (4)
  - Depression [Not Recovered/Not Resolved]
  - Asthenia [Not Recovered/Not Resolved]
  - Wound [Not Recovered/Not Resolved]
  - Cystitis [Recovered/Resolved]

NARRATIVE: CASE EVENT DATE: 2019
